FAERS Safety Report 5725883-4 (Version None)
Quarter: 2008Q2

REPORT INFORMATION
  Report Type: 
  Country: None (occurrence: None)
  Receive Date: 20080429
  Receipt Date: 20080422
  Transmission Date: 20081010
  Serious: Yes (Death, Other)
  Sender: FDA-Public Use
  Company Number: POMP-1000131

PATIENT
  Age: 2 Year
  Sex: Female
  Weight: 15.9 kg

DRUGS (10)
  1. MYOZYME [Suspect]
     Indication: GLYCOGEN STORAGE DISEASE TYPE II
     Dosage: 250 MG, Q2W, INTRAVENOUS
     Route: 042
     Dates: start: 20060327, end: 20080404
  2. BENADRYL [Concomitant]
  3. ACETAMINOPHEN [Concomitant]
  4. CAPTOPRIL [Concomitant]
  5. PROPRANOLOL [Concomitant]
  6. DIGOXIN [Concomitant]
  7. RANITIDINE [Concomitant]
  8. POLY-VI-SOL (VITAMINS NOS) [Concomitant]
  9. FERROUS SULFATE (FERROUS SULFATE, PYRIDOXINE, THIAMINE) [Concomitant]
  10. FUROSEMIDE (FUROSEMIDE SODIUM) [Concomitant]

REACTIONS (1)
  - BRAIN INJURY [None]
